FAERS Safety Report 19097884 (Version 1)
Quarter: 2021Q2

REPORT INFORMATION
  Report Type: Spontaneous
  Country: CA (occurrence: CA)
  Receive Date: 20210406
  Receipt Date: 20210406
  Transmission Date: 20210717
  Serious: Yes (Other)
  Sender: FDA-Public Use
  Company Number: CA-SEPTODONT-2021006214

PATIENT
  Age: 48 Year
  Sex: Female

DRUGS (1)
  1. LIDOCAINE HYDROCHLORIDE AND EPINEPHRINE BITARTRATE [Suspect]
     Active Substance: EPINEPHRINE BITARTRATE\LIDOCAINE HYDROCHLORIDE
     Route: 004

REACTIONS (10)
  - Heart rate increased [Unknown]
  - Hypertension [Unknown]
  - Pain [Unknown]
  - Agitation [Unknown]
  - Feeling hot [Unknown]
  - Chest pain [Unknown]
  - Syncope [Unknown]
  - Nausea [Unknown]
  - Pallor [Unknown]
  - Dyspnoea [Unknown]
